FAERS Safety Report 12605032 (Version 2)
Quarter: 2016Q3

REPORT INFORMATION
  Report Type: Spontaneous
  Country: VE (occurrence: VE)
  Receive Date: 20160728
  Receipt Date: 20160805
  Transmission Date: 20161109
  Serious: Yes (Other)
  Sender: FDA-Public Use
  Company Number: PHHY2016VE103730

PATIENT
  Sex: Female

DRUGS (6)
  1. TRILEPTAL [Suspect]
     Active Substance: OXCARBAZEPINE
     Indication: EPILEPSY
     Dosage: 26 CM3, QD
     Route: 048
  2. TRILEPTAL [Suspect]
     Active Substance: OXCARBAZEPINE
     Indication: EPILEPSY
     Dosage: 2400 MG, QD
     Route: 048
  3. TRILEPTAL [Suspect]
     Active Substance: OXCARBAZEPINE
     Dosage: 1200 MG, QD
     Route: 048
  4. FENOBARBITAL [Concomitant]
     Active Substance: PHENOBARBITAL
     Indication: EPILEPSY
     Dosage: 100 MG, QD
     Route: 065
  5. TRILEPTAL [Suspect]
     Active Substance: OXCARBAZEPINE
     Dosage: 1500 MG, QD
     Route: 048
  6. VITAMIN E [Concomitant]
     Active Substance: .ALPHA.-TOCOPHEROL
     Indication: EPILEPSY
     Dosage: 1 DF, QD
     Route: 065

REACTIONS (4)
  - General physical health deterioration [Not Recovered/Not Resolved]
  - Seizure [Not Recovered/Not Resolved]
  - Wrong technique in product usage process [Unknown]
  - Fall [Unknown]
